FAERS Safety Report 6176849-4 (Version None)
Quarter: 2009Q2

REPORT INFORMATION
  Report Type: 
  Country: None (occurrence: None)
  Receive Date: 20090501
  Receipt Date: 20090424
  Transmission Date: 20091009
  Serious: Yes (Hospitalization, Other)
  Sender: FDA-Public Use
  Company Number: PHEH2008US04759

PATIENT
  Sex: Male
  Weight: 82.086 kg

DRUGS (6)
  1. ZOMETA [Suspect]
     Indication: HYPERCALCAEMIA
  2. ATENOLOL [Concomitant]
     Dosage: 100 MG, QD
  3. HYDROCHLOROTHIAZIDE [Concomitant]
     Dosage: 50 MG, QD
  4. ASPIRIN [Concomitant]
  5. GLUCOSAMINE [Concomitant]
  6. RADIATION THERAPY [Concomitant]

REACTIONS (12)
  - ANAEMIA [None]
  - ANHEDONIA [None]
  - ANXIETY [None]
  - CONFUSIONAL STATE [None]
  - DYSPHAGIA [None]
  - HAEMATOCRIT ABNORMAL [None]
  - INJURY [None]
  - OSTEONECROSIS [None]
  - PAIN [None]
  - RENAL FAILURE [None]
  - TONSIL CANCER [None]
  - TONSILLECTOMY [None]
